FAERS Safety Report 4920854-X (Version None)
Quarter: 2006Q1

REPORT INFORMATION
  Report Type: 
  Country: None (occurrence: None)
  Receive Date: 20060217
  Receipt Date: 20060206
  Transmission Date: 20060701
  Serious: Yes (Other)
  Sender: FDA-Public Use
  Company Number: 044-20785-05120074

PATIENT
  Age: 65 Year
  Sex: Female

DRUGS (3)
  1. THALIDOMIDE - PHARMION(THALIDOMIDE) (50 MILLIGRAM, CAPSULES) [Suspect]
     Indication: MALIGNANT MELANOMA
     Dosage: 200 MG, QD, ORAL
     Route: 048
     Dates: start: 20050905, end: 20051031
  2. PEGINTRON (PEGINTERFERON ALFA-2A) [Suspect]
     Indication: MALIGNANT MELANOMA
     Dosage: 300 UG, QD
     Dates: start: 20050905
  3. INTERLEUKIN-2 (INTERLEUKIN-2) [Suspect]
     Indication: MALIGNANT MELANOMA
     Dosage: 33MG/24HR
     Dates: start: 20050905

REACTIONS (3)
  - ANXIETY [None]
  - HYPERTHYROIDISM [None]
  - TREMOR [None]
